FAERS Safety Report 14842930 (Version 1)
Quarter: 2018Q2

REPORT INFORMATION
  Report Type: Spontaneous
  Country: US (occurrence: US)
  Receive Date: 20180503
  Receipt Date: 20180503
  Transmission Date: 20180711
  Serious: No
  Sender: FDA-Public Use
  Company Number: US-IMPAX LABORATORIES, INC-2017-IPXL-01811

PATIENT
  Age: 69 Year
  Sex: Male

DRUGS (2)
  1. FLUDROCORTISONE ACETATE. [Suspect]
     Active Substance: FLUDROCORTISONE ACETATE
     Dosage: 0.1 MG (TOTAL DAILY DOSE), UNK
     Route: 065
     Dates: start: 20170123
  2. FLUDROCORTISONE ACETATE. [Suspect]
     Active Substance: FLUDROCORTISONE ACETATE
     Indication: HYPOTENSION
     Dosage: 0.1 MG, 2 /DAY
     Route: 065
     Dates: start: 2016, end: 20161117

REACTIONS (3)
  - Dizziness [Unknown]
  - Drug effect incomplete [Unknown]
  - Hypotension [Unknown]

NARRATIVE: CASE EVENT DATE: 20170203
